FAERS Safety Report 18116843 (Version 3)
Quarter: 2020Q3

REPORT INFORMATION
  Report Type: Spontaneous
  Country: US (occurrence: US)
  Receive Date: 20200805
  Receipt Date: 20200821
  Transmission Date: 20201103
  Serious: Yes (Hospitalization)
  Sender: FDA-Public Use
  Company Number: US-STRONGBRIDGE BIOPHARMA-2020-STR-000187

PATIENT
  Sex: Female

DRUGS (4)
  1. KEVEYIS [Suspect]
     Active Substance: DICHLORPHENAMIDE
     Dosage: 50 MG, QD
     Route: 048
  2. KEVEYIS [Suspect]
     Active Substance: DICHLORPHENAMIDE
     Dosage: 100 MG, QD
     Route: 048
     Dates: start: 20180428, end: 20191130
  3. KEVEYIS [Suspect]
     Active Substance: DICHLORPHENAMIDE
     Indication: FAMILIAL PERIODIC PARALYSIS
     Dosage: 25 MG, QD
     Route: 048
     Dates: start: 20200705
  4. DIVALPROEX [Concomitant]
     Active Substance: DIVALPROEX SODIUM
     Indication: MIGRAINE

REACTIONS (17)
  - Gastrooesophageal reflux disease [Unknown]
  - Neuralgia [Unknown]
  - Speech disorder [Unknown]
  - Weight decreased [Not Recovered/Not Resolved]
  - Insomnia [Unknown]
  - Myotonia [Unknown]
  - Blood potassium increased [Unknown]
  - Cough [Unknown]
  - Muscle spasms [Unknown]
  - Choking [Unknown]
  - Migraine [Unknown]
  - Wrong technique in product usage process [Not Recovered/Not Resolved]
  - Feeling abnormal [Unknown]
  - Headache [Unknown]
  - Pain [Unknown]
  - Paraesthesia oral [Unknown]
  - Dysgeusia [Unknown]
